FAERS Safety Report 8306696-6 (Version None)
Quarter: 2012Q1

REPORT INFORMATION
  Report Type: 
  Country: None (occurrence: None)
  Receive Date: 20120327
  Receipt Date: 20100503
  Transmission Date: 20120608
  Serious: Yes (Other)
  Sender: FDA-Public Use
  Company Number: PHHY2010US28915

PATIENT
  Age: 66 Year
  Sex: Male

DRUGS (6)
  1. AVAPRO [Concomitant]
  2. AMLODIPINE BESYLATE [Concomitant]
  3. ALLOPURINOL [Concomitant]
  4. ACTOS (PIOGLITAZONE, PIOGLITAZONE HYDROCHLORIDE) [Concomitant]
  5. FUROSEMIDE [Concomitant]
  6. GLEEVEC [Suspect]
     Indication: CHRONIC MYELOID LEUKAEMIA
     Dosage: 400 MG/DAY, ORAL 100 MG, QD, ORAL
     Route: 048
     Dates: start: 20100406

REACTIONS (4)
  - ASTHENIA [None]
  - NEPHROPATHY TOXIC [None]
  - RENAL FAILURE [None]
  - NAUSEA [None]
